FAERS Safety Report 21618237 (Version 2)
Quarter: 2022Q4

REPORT INFORMATION
  Report Type: Spontaneous
  Country: US (occurrence: US)
  Receive Date: 20221119
  Receipt Date: 20221130
  Transmission Date: 20230112
  Serious: No
  Sender: FDA-Public Use
  Company Number: US-AUROBINDO-AUR-APL-2022-049102

PATIENT
  Sex: Female
  Weight: 65.7 kg

DRUGS (1)
  1. LEVOFLOXACIN [Suspect]
     Active Substance: LEVOFLOXACIN
     Indication: Sinusitis
     Dosage: UNK, TWO TIMES A DAY
     Route: 065
     Dates: start: 201908

REACTIONS (3)
  - Tendon rupture [Not Recovered/Not Resolved]
  - Loss of personal independence in daily activities [Not Recovered/Not Resolved]
  - Condition aggravated [Not Recovered/Not Resolved]
